FAERS Safety Report 8712623 (Version 2)
Quarter: 2012Q4

REPORT INFORMATION
  Report Type: 
  Country: US (occurrence: US)
  Receive Date: 20120808
  Receipt Date: 20121213
  Transmission Date: 20130627
  Serious: Yes (Hospitalization)
  Sender: FDA-Public Use
  Company Number: US-BAYER-2012-077769

PATIENT
  Age: 44 Year
  Sex: Female
  Weight: 97.51 kg

DRUGS (15)
  1. YASMIN [Suspect]
     Indication: PREMENSTRUAL SYNDROME
     Dosage: UNK
     Dates: start: 200501, end: 200611
  2. AVELOX [Concomitant]
     Dosage: 400 mg, UNK
     Route: 048
     Dates: start: 20061031
  3. VYTORIN [Concomitant]
     Indication: CHOLESTEROL HIGH
     Dosage: 10/20 mg ;UNK
     Route: 048
     Dates: start: 20060921, end: 20061205
  4. VITAMIN C [Concomitant]
     Dosage: UNK
     Route: 048
     Dates: start: 20060921
  5. IRON [Concomitant]
     Dosage: UNK
     Route: 048
     Dates: start: 20060921
  6. ANTI-DIARRHEAL [Concomitant]
     Dosage: UNK
     Route: 048
     Dates: start: 20060907, end: 20061116
  7. PRAVACHOL [Concomitant]
     Dosage: UNK
     Route: 048
     Dates: start: 20061116
  8. ALLERGY MEDICATION OVER THE COUNTER [Concomitant]
     Indication: ALLERGY
     Dosage: UNK
     Route: 048
     Dates: start: 20061116
  9. LIDODERM [Concomitant]
     Indication: MUSCULOSKELETAL PAIN
     Dosage: UNK
     Route: 061
     Dates: start: 20061127
  10. PROVIGIL [Concomitant]
     Dosage: 200 mg, UNK
     Route: 048
     Dates: start: 20060921, end: 20061201
  11. ASA [Concomitant]
     Indication: HEART DISORDER
     Dosage: 81 mg, UNK
     Route: 048
     Dates: start: 20060921, end: 20061202
  12. BENICAR HCT [Concomitant]
     Indication: HYPERTENSION
     Dosage: 20/12.5 mg ;UNK
     Route: 048
     Dates: start: 20060921, end: 20061205
  13. LEXAPRO [Concomitant]
     Indication: DEPRESSION
     Dosage: 15 mg, UNK
     Route: 048
     Dates: start: 20060921, end: 20061205
  14. TRAZODONE [Concomitant]
     Indication: SLEEP DISORDER NOS
     Dosage: 100 mg, UNK
     Route: 048
     Dates: start: 20060921, end: 20061205
  15. GABITRIL [Concomitant]
     Indication: SLEEP DISORDER NOS
     Dosage: 4 mg, UNK
     Route: 048
     Dates: start: 20060921, end: 20061205

REACTIONS (9)
  - Cholecystitis chronic [None]
  - Gallbladder disorder [None]
  - Abdominal pain [None]
  - Pain [None]
  - Injury [None]
  - General physical health deterioration [None]
  - Anxiety [None]
  - Emotional distress [None]
  - Off label use [None]
